FAERS Safety Report 5569786-7 (Version None)
Quarter: 2007Q4

REPORT INFORMATION
  Report Type: 
  Country: None (occurrence: None)
  Receive Date: 20071218
  Receipt Date: 20071203
  Transmission Date: 20080405
  Serious: Yes (Disabling, Other)
  Sender: FDA-Public Use
  Company Number: US021786

PATIENT
  Age: 58 Year
  Sex: Female
  Weight: 50.8 kg

DRUGS (3)
  1. PROVIGIL [Suspect]
     Indication: NARCOLEPSY
     Dosage: 100 MG QID ORAL
     Route: 048
     Dates: start: 20020101
  2. PROVIGIL [Suspect]
     Indication: NARCOLEPSY
     Dosage: 200 MG TID ORAL
     Route: 048
     Dates: start: 20020101
  3. LANSOPRAZOLE [Concomitant]

REACTIONS (8)
  - ABNORMAL BEHAVIOUR [None]
  - CONFUSIONAL STATE [None]
  - DYSARTHRIA [None]
  - INFECTION [None]
  - MALAISE [None]
  - NAUSEA [None]
  - OVERDOSE [None]
  - VOMITING [None]
